FAERS Safety Report 4379620-9 (Version None)
Quarter: 2004Q2

REPORT INFORMATION
  Report Type: 
  Country: None (occurrence: None)
  Receive Date: 20040614
  Receipt Date: 20040602
  Transmission Date: 20050107
  Serious: Yes (Other)
  Sender: FDA-Public Use
  Company Number: 206926

PATIENT
  Age: 41 Year
  Sex: Male
  Weight: 235 kg

DRUGS (10)
  1. XOLAIR (OMALIZUMAB( PWDER + SOLVENT, INJECTION SOLN, 150MG [Suspect]
     Indication: ASTHMA
     Dosage: 300 MG, Q2W
     Dates: start: 20040504
  2. SINGULAIR [Concomitant]
  3. PULMICORT [Concomitant]
  4. DUONEB (ALBUTEROL SULFATE, ALBUTEROL, IPRATROPIUM BROMIDE) [Concomitant]
  5. ALLEGRA-D (PSEUDOEPHEDRINE HYDROCHLORIDE, FEXOFENADINE HYDROCHLORIDE) [Concomitant]
  6. MULTIVITAMIN (MULTIVITAMINS NOS) [Concomitant]
  7. CALCIUM/VITAMIN D (CALCIUM NOS, CHOLECALCIFEROL) [Concomitant]
  8. ALLERGY INJECTION (ALLERGENIC EXTRACTS) [Concomitant]
  9. OXYGEN AT HOME (OXYGEN) [Concomitant]
  10. NEXIUM [Concomitant]

REACTIONS (3)
  - CHEST DISCOMFORT [None]
  - DYSPNOEA [None]
  - PAIN [None]
